FAERS Safety Report 19646275 (Version 1)
Quarter: 2021Q3

REPORT INFORMATION
  Report Type: Spontaneous
  Country: US (occurrence: US)
  Receive Date: 20210802
  Receipt Date: 20210802
  Transmission Date: 20211014
  Serious: No
  Sender: FDA-Public Use
  Company Number: US-ELI_LILLY_AND_COMPANY-US202107013019

PATIENT
  Sex: Female

DRUGS (2)
  1. VERZENIO [Suspect]
     Active Substance: ABEMACICLIB
     Indication: BREAST CANCER FEMALE
     Dosage: 150 MG, UNKNOWN
     Route: 065
     Dates: start: 20210707
  2. PEDIALYTE [CALCIUM CHLORIDE;GLUCOSE;MAGNESIUM [Concomitant]
     Indication: DEHYDRATION

REACTIONS (2)
  - Nausea [Unknown]
  - Diarrhoea [Unknown]
